FAERS Safety Report 6525476-5 (Version None)
Quarter: 2010Q1

REPORT INFORMATION
  Report Type: 
  Country: None (occurrence: None)
  Receive Date: 20100104
  Receipt Date: 20091222
  Transmission Date: 20100710
  Serious: Yes (Other)
  Sender: FDA-Public Use
  Company Number: US-ELI_LILLY_AND_COMPANY-US200912005466

PATIENT
  Sex: Female

DRUGS (18)
  1. FORTEO [Suspect]
     Indication: OSTEOPOROSIS
     Dosage: 20 UG, DAILY (1/D)
     Dates: start: 20090701
  2. FORTEO [Suspect]
     Dosage: 20 UG, DAILY (1/D)
     Dates: start: 20090701
  3. CALCIUM                                 /N/A/ [Concomitant]
  4. VITAMIN D [Concomitant]
     Dosage: UNKNOWN DOSE
  5. VITAMIN D [Concomitant]
     Dosage: 1000 IU, UNK
  6. VITAMINS NOS [Concomitant]
  7. PHENERGAN HCL [Concomitant]
     Indication: NAUSEA
  8. NEXIUM [Concomitant]
     Dosage: 40 MG, UNK
  9. PREMARIN [Concomitant]
     Dosage: 0.3 MG, UNK
  10. CARAFATE [Concomitant]
  11. POTASSIUM [Concomitant]
  12. SEROQUEL [Concomitant]
     Indication: SLEEP DISORDER
     Dosage: UNK, AS NEEDED
  13. ROBAXIN [Concomitant]
     Indication: MUSCLE SPASMS
     Dosage: UNK, AS NEEDED
  14. VALIUM [Concomitant]
     Indication: PANIC ATTACK
     Dosage: 0.5 MG, AS NEEDED
  15. DARVOCET [Concomitant]
  16. LASIX [Concomitant]
  17. PERCOCET [Concomitant]
  18. CYMBALTA [Concomitant]
     Dosage: 90 MG, DAILY (1/D)

REACTIONS (1)
  - LOSS OF CONSCIOUSNESS [None]
